FAERS Safety Report 16941339 (Version 2)
Quarter: 2020Q1

REPORT INFORMATION
  Report Type: Spontaneous
  Country: DE (occurrence: DE)
  Receive Date: 20191021
  Receipt Date: 20200123
  Transmission Date: 20200409
  Serious: Yes (Death)
  Sender: FDA-Public Use
  Company Number: NVSC2019DE010532

PATIENT
  Age: 31 Year
  Sex: Male

DRUGS (4)
  1. DEXAMETHASONE. [Suspect]
     Active Substance: DEXAMETHASONE
     Indication: COGNITIVE DISORDER
     Dosage: UNK
     Route: 048
  2. METHYLPREDNISOLONE. [Suspect]
     Active Substance: METHYLPREDNISOLONE
     Indication: AUTOIMMUNE DISORDER
  3. METHYLPREDNISOLONE. [Suspect]
     Active Substance: METHYLPREDNISOLONE
     Indication: NEUROLOGICAL DECOMPENSATION
     Dosage: 1 G,HIGH DOSAGE
     Route: 042
  4. DEXAMETHASONE. [Suspect]
     Active Substance: DEXAMETHASONE
     Indication: BRAIN OEDEMA
     Dosage: 16 MG, QD,HIGH DOSE
     Route: 048

REACTIONS (9)
  - Acute respiratory distress syndrome [Fatal]
  - Pneumonia [Unknown]
  - Blastomycosis [Fatal]
  - Leukocytosis [Fatal]
  - Respiratory failure [Fatal]
  - Chest pain [Fatal]
  - Fungal disease carrier [Fatal]
  - Dyspnoea [Fatal]
  - Multiple organ dysfunction syndrome [Fatal]
